FAERS Safety Report 24432111 (Version 1)
Quarter: 2024Q4

REPORT INFORMATION
  Report Type: Other
  Country: GB (occurrence: GB)
  Receive Date: 20241014
  Receipt Date: 20241014
  Transmission Date: 20250115
  Serious: Yes (Other)
  Sender: PL DEVELOPMENTS
  Company Number: GB-P+L Developments of Newyork Corporation-2162970

PATIENT
  Age: 62 Year
  Sex: Male

DRUGS (2)
  1. OMEPRAZOLE MAGNESIUM [Suspect]
     Active Substance: OMEPRAZOLE MAGNESIUM
     Indication: Prophylaxis against gastrointestinal ulcer
     Dates: start: 2021
  2. IBUPROFEN [Concomitant]
     Active Substance: IBUPROFEN

REACTIONS (1)
  - Dermatitis exfoliative [Unknown]

NARRATIVE: CASE EVENT DATE: 20210101
